FAERS Safety Report 4803387-0 (Version None)
Quarter: 2005Q4

REPORT INFORMATION
  Report Type: 
  Country: None (occurrence: None)
  Receive Date: 20051019
  Receipt Date: 20051007
  Transmission Date: 20060501
  Serious: Yes (Hospitalization, Other)
  Sender: FDA-Public Use
  Company Number: JP-JNJFOC-20050100908

PATIENT
  Sex: Male

DRUGS (9)
  1. RISPERDAL [Suspect]
     Route: 048
  2. RISPERDAL [Suspect]
     Route: 048
  3. RISPERDAL [Suspect]
     Route: 048
  4. RISPERDAL [Suspect]
     Route: 048
  5. RISPERDAL [Suspect]
     Indication: SCHIZOPHRENIA
     Route: 048
  6. BIPERIDEN HYDROCHLORIDE TAB [Concomitant]
     Route: 048
  7. FLUNITRAZEPAM [Concomitant]
     Route: 048
  8. LORAZEPAM [Concomitant]
     Indication: TENSION
     Route: 048
  9. MOSAPRIDE CITRATE [Concomitant]
     Route: 048

REACTIONS (11)
  - ANAEMIA [None]
  - BLOOD CHOLINESTERASE DECREASED [None]
  - DYSPHAGIA [None]
  - EXTRAPYRAMIDAL DISORDER [None]
  - HYPERCHOLESTEROLAEMIA [None]
  - HYPOKALAEMIA [None]
  - HYPOPROTEINAEMIA [None]
  - MALNUTRITION [None]
  - PNEUMONIA ASPIRATION [None]
  - WEIGHT DECREASED [None]
  - WHITE BLOOD CELL COUNT INCREASED [None]
